FAERS Safety Report 12157195 (Version 3)
Quarter: 2017Q3

REPORT INFORMATION
  Report Type: Report from Study
  Country: JP (occurrence: JP)
  Receive Date: 20160308
  Receipt Date: 20170831
  Transmission Date: 20171127
  Serious: Yes (Other)
  Sender: FDA-Public Use
  Company Number: JP-ROCHE-1722046

PATIENT

DRUGS (6)
  1. TS-1 [Suspect]
     Active Substance: GIMERACIL\OTERACIL\TEGAFUR
     Indication: INTESTINAL METASTASIS
  2. OXALIPLATIN. [Suspect]
     Active Substance: OXALIPLATIN
     Indication: INTESTINAL METASTASIS
  3. BEVACIZUMAB. [Suspect]
     Active Substance: BEVACIZUMAB
     Indication: METASTASES TO LIVER
     Route: 065
  4. BEVACIZUMAB. [Suspect]
     Active Substance: BEVACIZUMAB
     Indication: INTESTINAL METASTASIS
  5. TS-1 [Suspect]
     Active Substance: GIMERACIL\OTERACIL\TEGAFUR
     Indication: METASTASES TO LIVER
     Route: 065
  6. OXALIPLATIN. [Suspect]
     Active Substance: OXALIPLATIN
     Indication: METASTASES TO LIVER
     Route: 065

REACTIONS (15)
  - Hepatic function abnormal [Unknown]
  - Leukopenia [Unknown]
  - Wound infection [Unknown]
  - Muscle abscess [Unknown]
  - Neutropenia [Unknown]
  - Decreased appetite [Unknown]
  - Ascites [Unknown]
  - Thrombocytopenia [Unknown]
  - Biliary tract disorder [Unknown]
  - Abdominal abscess [Unknown]
  - Dehydration [Unknown]
  - Anastomotic leak [Unknown]
  - Urinary tract disorder [Unknown]
  - Diarrhoea [Unknown]
  - Atelectasis [Unknown]
